FAERS Safety Report 6657895-0 (Version None)
Quarter: 2010Q1

REPORT INFORMATION
  Report Type: 
  Country: None (occurrence: None)
  Receive Date: 20100330
  Receipt Date: 20100322
  Transmission Date: 20100710
  Serious: Yes (Other)
  Sender: FDA-Public Use
  Company Number: US-ROCHE-692575

PATIENT
  Age: 60 Year
  Sex: Female

DRUGS (3)
  1. AVASTIN [Suspect]
     Indication: NON-SMALL CELL LUNG CANCER STAGE IV
     Dosage: ON DAY 1
     Route: 065
     Dates: start: 20071001, end: 20080101
  2. XELODA [Suspect]
     Route: 065
  3. GEMZAR [Suspect]
     Indication: NON-SMALL CELL LUNG CANCER STAGE IV
     Dosage: ON DAY 1 AND 8
     Route: 065
     Dates: start: 20071001, end: 20080101

REACTIONS (2)
  - HYPERTENSION [None]
  - METASTASES TO MENINGES [None]
